FAERS Safety Report 9511342 (Version 1)
Quarter: 2013Q3

REPORT INFORMATION
  Report Type: Spontaneous
  Country: CN (occurrence: CN)
  Receive Date: 20130910
  Receipt Date: 20130910
  Transmission Date: 20140515
  Serious: Yes (Life-Threatening, Other)
  Sender: FDA-Public Use
  Company Number: CN-JNJFOC-20130815298

PATIENT
  Sex: 0

DRUGS (13)
  1. DOXORUBICIN [Suspect]
     Indication: EXTRANODAL NK/T-CELL LYMPHOMA, NASAL TYPE
     Dosage: ON DAY 1; 4 CYCLES
     Route: 042
  2. DOXORUBICIN [Suspect]
     Indication: EXTRANODAL NK/T-CELL LYMPHOMA, NASAL TYPE
     Dosage: ON DAY 1; 4-8 CYCLES
     Route: 042
  3. CYCLOPHOSPHAMIDE [Suspect]
     Indication: EXTRANODAL NK/T-CELL LYMPHOMA, NASAL TYPE
     Dosage: ON DAY 1; 4 CYCLES
     Route: 042
  4. CYCLOPHOSPHAMIDE [Suspect]
     Indication: EXTRANODAL NK/T-CELL LYMPHOMA, NASAL TYPE
     Dosage: ON DAY 1; 4-8 CYCLES
     Route: 042
  5. VINCRISTINE [Suspect]
     Indication: EXTRANODAL NK/T-CELL LYMPHOMA, NASAL TYPE
     Dosage: ON DAY 1; 4-8 CYCLES
     Route: 042
  6. VINCRISTINE [Suspect]
     Indication: EXTRANODAL NK/T-CELL LYMPHOMA, NASAL TYPE
     Dosage: ON DAY 1; 4 CYCLES
     Route: 042
  7. DEXAMETHASONE [Suspect]
     Indication: EXTRANODAL NK/T-CELL LYMPHOMA, NASAL TYPE
     Dosage: ON DAY 1; 4 CYCLES
     Route: 042
  8. DEXAMETHASONE [Suspect]
     Indication: EXTRANODAL NK/T-CELL LYMPHOMA, NASAL TYPE
     Dosage: ON DAY 1; 4-8 CYCLES
     Route: 042
  9. L-ASPARAGINASE [Suspect]
     Indication: EXTRANODAL NK/T-CELL LYMPHOMA, NASAL TYPE
     Dosage: 6000 U/M2; ON DAYS 2-8 ; 4 CYCLES
     Route: 065
  10. L-ASPARAGINASE [Suspect]
     Indication: EXTRANODAL NK/T-CELL LYMPHOMA, NASAL TYPE
     Dosage: 6000 U/M2; ON DAYS 2-8 ; 4-8 CYCLES
     Route: 065
  11. PEGASPARGASE [Suspect]
     Indication: EXTRANODAL NK/T-CELL LYMPHOMA, NASAL TYPE
     Dosage: 2500 U/M2; ON DAY 2 ; 4 CYCLES
     Route: 030
  12. PEGASPARGASE [Suspect]
     Indication: EXTRANODAL NK/T-CELL LYMPHOMA, NASAL TYPE
     Dosage: 2500 U/M2; ON DAY 2 ; 4 CYCLES
     Route: 030
  13. RADIOTHERAPY [Suspect]
     Indication: EXTRANODAL NK/T-CELL LYMPHOMA, NASAL TYPE
     Dosage: 40-60 GY
     Route: 065

REACTIONS (24)
  - Traumatic lung injury [Unknown]
  - Electrocardiogram abnormal [Unknown]
  - Hyperglycaemia [Unknown]
  - Hypoglycaemia [Unknown]
  - Alanine aminotransferase increased [Unknown]
  - Aspartate aminotransferase increased [Unknown]
  - Sinus tachycardia [Unknown]
  - Febrile neutropenia [Unknown]
  - Neutropenic infection [Unknown]
  - Extranodal NK/T-cell lymphoma, nasal type [Unknown]
  - Interstitial lung disease [Recovered/Resolved]
  - Nausea [Unknown]
  - Vomiting [Unknown]
  - Leukopenia [Unknown]
  - Neutropenia [Unknown]
  - Anaemia [Unknown]
  - Blood urea increased [Unknown]
  - Hypocalcaemia [Unknown]
  - Hypercholesterolaemia [Unknown]
  - Hypertriglyceridaemia [Unknown]
  - Blood fibrinogen decreased [Unknown]
  - Hypoalbuminaemia [Unknown]
  - Blood bilirubin increased [Unknown]
  - Thrombocytopenia [Unknown]
